FAERS Safety Report 8719720 (Version 2)
Quarter: 2013Q2

REPORT INFORMATION
  Report Type: Report from Study
  Country: JP (occurrence: JP)
  Receive Date: 20120813
  Receipt Date: 20130506
  Transmission Date: 20140414
  Serious: Yes (Other)
  Sender: FDA-Public Use
  Company Number: PHHY2012JP069210

PATIENT
  Age: 29 Year
  Sex: Male
  Weight: 56 kg

DRUGS (14)
  1. CERTICAN [Suspect]
     Indication: HEART TRANSPLANT
     Dosage: 1.5 MG, DAILY
     Route: 048
     Dates: start: 20110912, end: 20110919
  2. CERTICAN [Suspect]
     Dosage: 1 MG, DAILY
     Route: 048
     Dates: start: 20110920
  3. PROGRAF [Suspect]
     Indication: HEART TRANSPLANT
     Dosage: 4 MG, DAILY
     Route: 048
     Dates: start: 20110912, end: 20110912
  4. PROGRAF [Suspect]
     Dosage: 3.5 MG, DAILY
     Route: 048
     Dates: start: 20110912, end: 20110920
  5. PROGRAF [Suspect]
     Dosage: 3.2 MG, DAILY
     Route: 048
     Dates: start: 20110921, end: 20110923
  6. PROGRAF [Suspect]
     Dosage: 3 MG, DAILY
     Route: 048
     Dates: start: 20110924
  7. VALIXA [Suspect]
     Indication: ANTIVIRAL PROPHYLAXIS
     Dosage: 450 MG, QD
     Route: 048
     Dates: start: 20110707, end: 20110920
  8. PREDNISOLONE [Concomitant]
     Indication: HEART TRANSPLANT
     Dosage: 8 MG, UNK
     Route: 048
     Dates: start: 20110912
  9. PREDNISOLONE [Concomitant]
     Dosage: 4 MG, UNK
     Route: 048
     Dates: start: 20110912
  10. CELLCEPT [Concomitant]
     Indication: HEART TRANSPLANT
     Dosage: 500 MG, UNK
     Route: 048
     Dates: start: 20110912
  11. RENIVACE [Concomitant]
     Indication: HYPERTENSION
     Dosage: 215 MG, UNK
     Route: 048
     Dates: start: 20110912
  12. CRESTOR [Concomitant]
     Indication: TYPE IIA HYPERLIPIDAEMIA
     Dosage: 10 MG, UNK
     Route: 048
  13. ZETIA [Concomitant]
     Indication: TYPE IIA HYPERLIPIDAEMIA
     Dosage: 10 MG, UNK
     Route: 048
  14. TAKEPRON [Concomitant]
     Indication: PROPHYLAXIS
     Dosage: 15 MG, UNK
     Route: 048

REACTIONS (1)
  - Febrile neutropenia [Recovered/Resolved]
